FAERS Safety Report 8166654-1 (Version None)
Quarter: 2012Q1

REPORT INFORMATION
  Report Type: 
  Country: None (occurrence: None)
  Receive Date: 20120227
  Receipt Date: 20120215
  Transmission Date: 20120608
  Serious: Yes (Life-Threatening)
  Sender: FDA-Public Use
  Company Number: IT-BAYER-2012-015512

PATIENT
  Age: 80 Year
  Sex: Female

DRUGS (4)
  1. CIPROFLOXACIN HYDROCHLORIDE [Suspect]
     Indication: SKIN ULCER
     Dosage: DAILY DOSE 400 MG
     Route: 042
     Dates: start: 20120211, end: 20120213
  2. LIPOVENOES PLR [Concomitant]
     Dosage: DAILY DOSE 250 ML
     Route: 042
  3. BATIXIM [Concomitant]
     Dosage: DAILY DOSE 4 G
     Route: 042
     Dates: start: 20120207, end: 20120210
  4. KANRENOL [Concomitant]
     Dosage: DAILY DOSE 200 MG
     Route: 042
     Dates: start: 20120212, end: 20120213

REACTIONS (5)
  - CONFUSIONAL STATE [None]
  - FACE OEDEMA [None]
  - EYELID OEDEMA [None]
  - FLUSHING [None]
  - SOPOR [None]
